FAERS Safety Report 7068818-7 (Version None)
Quarter: 2010Q4

REPORT INFORMATION
  Report Type: 
  Country: None (occurrence: None)
  Receive Date: 20101028
  Receipt Date: 20101026
  Transmission Date: 20110411
  Serious: Yes (Death)
  Sender: FDA-Public Use
  Company Number: US-MERCK-1009USA05364

PATIENT
  Age: 39 Year
  Sex: Male

DRUGS (1)
  1. ISENTRESS [Suspect]
     Indication: IMMUNODEFICIENCY
     Route: 048
     Dates: start: 20100908

REACTIONS (1)
  - DEATH [None]
